FAERS Safety Report 7039829-2 (Version None)
Quarter: 2010Q4

REPORT INFORMATION
  Report Type: 
  Country: None (occurrence: None)
  Receive Date: 20101012
  Receipt Date: 20101008
  Transmission Date: 20110411
  Serious: Yes (Other)
  Sender: FDA-Public Use
  Company Number: PR-BRISTOL-MYERS SQUIBB COMPANY-15325582

PATIENT
  Age: 85 Year
  Sex: Female
  Weight: 48 kg

DRUGS (10)
  1. COUMADIN [Suspect]
     Dosage: TAKEN FOR 7 YRS RESTARTED
  2. ATENOLOL [Concomitant]
  3. OMEPRAZOLE [Concomitant]
  4. KLOR-CON [Concomitant]
     Dosage: TAB
  5. FUROSEMIDE [Concomitant]
     Indication: DIURETIC THERAPY
     Dosage: TAB
  6. SIMVASTATIN [Concomitant]
     Indication: BLOOD CHOLESTEROL
  7. LANSOPRAZOLE [Concomitant]
     Indication: ANTACID THERAPY
     Dosage: LANSOPRAZOLE DR
  8. HYDROXYZINE HCL [Concomitant]
     Indication: SLEEP DISORDER
  9. FERROUS SULFATE [Concomitant]
     Indication: HAEMOGLOBIN DECREASED
  10. RESTASIS [Concomitant]
     Dosage: IMULSION EYE DROPS

REACTIONS (4)
  - HAEMORRHAGE [None]
  - OSTEOARTHRITIS [None]
  - PROTHROMBIN TIME ABNORMAL [None]
  - SPINAL FRACTURE [None]
